FAERS Safety Report 8614729-2 (Version None)
Quarter: 2012Q3

REPORT INFORMATION
  Report Type: 
  Country: None (occurrence: None)
  Receive Date: 20120809
  Receipt Date: 20120730
  Transmission Date: 20120928
  Serious: Yes (Disabling)
  Sender: FDA-Public Use
  Company Number: 2012AP002321

PATIENT
  Age: 64 Year
  Sex: Female

DRUGS (1)
  1. TERBINAFINE HCL [Suspect]
     Dosage: 25O MG, QD, PO
     Route: 048

REACTIONS (2)
  - HEARING IMPAIRED [None]
  - TINNITUS [None]
